FAERS Safety Report 8782960 (Version 1)
Quarter: 2012Q4

REPORT INFORMATION
  Report Type: Report from Study
  Country: US (occurrence: US)
  Receive Date: 20120913
  Receipt Date: 20120913
  Transmission Date: 20130627
  Serious: No
  Sender: FDA-Public Use
  Company Number: US-VERTEX PHARMACEUTICAL INC.-AE-2012-009830

PATIENT
  Age: 44 Year
  Sex: Male
  Weight: 78.64 kg

DRUGS (5)
  1. INCIVEK [Suspect]
     Indication: HEPATITIS C
     Route: 048
     Dates: start: 20111217, end: 20120317
  2. RIBAVIRIN [Concomitant]
     Indication: HEPATITIS C
     Dates: end: 20120626
  3. PEGASYS [Concomitant]
     Indication: HEPATITIS C
     Dates: end: 20120626
  4. XANAX TAB [Concomitant]
  5. ACIPHEX [Concomitant]

REACTIONS (4)
  - Dyspnoea [Unknown]
  - Fatigue [Unknown]
  - Nausea [Unknown]
  - Vomiting [Unknown]
